FAERS Safety Report 26088591 (Version 1)
Quarter: 2025Q4

REPORT INFORMATION
  Report Type: Spontaneous
  Country: US (occurrence: None)
  Receive Date: 20251125
  Receipt Date: 20251125
  Transmission Date: 20260117
  Serious: Yes (Life-Threatening, Hospitalization, Disabling)
  Sender: FDA-CTU
  Company Number: None

PATIENT
  Age: 31 Year
  Sex: Male
  Weight: 90 kg

DRUGS (4)
  1. COBENFY [Suspect]
     Active Substance: TROSPIUM CHLORIDE\XANOMELINE
     Indication: Schizophrenia
  2. Serowurl [Concomitant]
  3. DEPAKOTE [Concomitant]
     Active Substance: DIVALPROEX SODIUM
  4. Vitamins D [Concomitant]

REACTIONS (6)
  - Tachycardia [None]
  - Hallucination [None]
  - Restless legs syndrome [None]
  - Restless arm syndrome [None]
  - Anxiety [None]
  - Blood test abnormal [None]

NARRATIVE: CASE EVENT DATE: 20250905
